FAERS Safety Report 25458465 (Version 1)
Quarter: 2025Q2

REPORT INFORMATION
  Report Type: Spontaneous
  Country: US (occurrence: US)
  Receive Date: 20250620
  Receipt Date: 20250620
  Transmission Date: 20250716
  Serious: No
  Sender: SANOFI AVENTIS
  Company Number: US-SA-2025SA169766

PATIENT
  Age: 44 Year
  Sex: Female
  Weight: 59.09 kg

DRUGS (3)
  1. DUPIXENT [Suspect]
     Active Substance: DUPILUMAB
     Indication: Illness
     Dosage: 300 MG, QW
     Route: 058
     Dates: start: 202409
  2. DUPIXENT [Suspect]
     Active Substance: DUPILUMAB
     Indication: Eosinophilic oesophagitis
  3. UNITHROID [Concomitant]
     Active Substance: LEVOTHYROXINE SODIUM

REACTIONS (7)
  - Blood sodium decreased [Unknown]
  - Migraine [Unknown]
  - Anxiety [Unknown]
  - Dyspnoea [Unknown]
  - Poor quality sleep [Unknown]
  - Weight decreased [Unknown]
  - Sinus operation [Unknown]

NARRATIVE: CASE EVENT DATE: 20240901
